FAERS Safety Report 17803906 (Version 3)
Quarter: 2020Q3

REPORT INFORMATION
  Report Type: Spontaneous
  Country: US (occurrence: US)
  Receive Date: 20200519
  Receipt Date: 20200910
  Transmission Date: 20201102
  Serious: Yes (Other)
  Sender: FDA-Public Use
  Company Number: US-GILEAD-2020-0467117

PATIENT
  Age: 29 Year
  Sex: Male
  Weight: 48.98 kg

DRUGS (11)
  1. TRAMADOL. [Concomitant]
     Active Substance: TRAMADOL
  2. LOVENOX HP [Concomitant]
     Active Substance: ENOXAPARIN SODIUM
  3. STRIBILD [Suspect]
     Active Substance: COBICISTAT\ELVITEGRAVIR\EMTRICITABINE\TENOFOVIR DISOPROXIL FUMARATE
     Indication: HIV INFECTION
     Dosage: UNK
     Route: 048
     Dates: start: 20130108, end: 20180717
  4. ALENDRONATE [Concomitant]
     Active Substance: ALENDRONATE SODIUM
  5. NAPROXEN. [Concomitant]
     Active Substance: NAPROXEN
  6. OMEPRAZOLE. [Concomitant]
     Active Substance: OMEPRAZOLE
  7. OXYCODONE [Concomitant]
     Active Substance: OXYCODONE
  8. GENVOYA [Concomitant]
     Active Substance: COBICISTAT\ELVITEGRAVIR\EMTRICITABINE\TENOFOVIR ALAFENAMIDE FUMARATE
  9. RANITIDINE. [Concomitant]
     Active Substance: RANITIDINE
  10. COUMADIN [Concomitant]
     Active Substance: WARFARIN SODIUM
  11. CYCLOBENZAPRINE. [Concomitant]
     Active Substance: CYCLOBENZAPRINE

REACTIONS (12)
  - Tooth loss [Not Recovered/Not Resolved]
  - Kyphosis [Not Recovered/Not Resolved]
  - Tooth extraction [Not Recovered/Not Resolved]
  - Emotional distress [Unknown]
  - Renal cyst [Not Recovered/Not Resolved]
  - Pain [Unknown]
  - Depression [Not Recovered/Not Resolved]
  - Osteonecrosis [Not Recovered/Not Resolved]
  - Economic problem [Unknown]
  - Bone density decreased [Unknown]
  - Bone loss [Unknown]
  - Back pain [Not Recovered/Not Resolved]

NARRATIVE: CASE EVENT DATE: 20150922
